FAERS Safety Report 6767819-3 (Version None)
Quarter: 2010Q2

REPORT INFORMATION
  Report Type: 
  Country: None (occurrence: None)
  Receive Date: 20100614
  Receipt Date: 20100603
  Transmission Date: 20101027
  Serious: Yes (Hospitalization)
  Sender: FDA-Public Use
  Company Number: US-BAXTER-2010BH014864

PATIENT
  Age: 77 Year
  Sex: Male
  Weight: 77 kg

DRUGS (12)
  1. GAMMAGARD LIQUID [Suspect]
     Indication: DEMENTIA ALZHEIMER'S TYPE
     Route: 042
     Dates: start: 20100602, end: 20100602
  2. GAMMAGARD LIQUID [Suspect]
     Route: 042
     Dates: start: 20091104
  3. ARICEPT [Concomitant]
     Indication: DEMENTIA ALZHEIMER'S TYPE
     Route: 048
     Dates: start: 20030101
  4. NAMENDA [Concomitant]
     Indication: DEMENTIA ALZHEIMER'S TYPE
     Route: 048
     Dates: start: 20080901
  5. SIMVASTATIN [Concomitant]
     Indication: HYPERLIPIDAEMIA
     Route: 048
     Dates: start: 20040101
  6. TRAZODONE [Concomitant]
     Indication: SLEEP DISORDER THERAPY
     Route: 048
     Dates: start: 20090725
  7. NORTRIPTYLINE HCL [Concomitant]
     Indication: SLEEP DISORDER THERAPY
     Route: 048
     Dates: start: 20070101, end: 20090722
  8. DESIPRAMINE HCL [Concomitant]
     Indication: HEADACHE
     Route: 048
     Dates: start: 20070101, end: 20090722
  9. PIROXICAM [Concomitant]
     Indication: HEADACHE
     Route: 048
     Dates: start: 20090303, end: 20090722
  10. TYLENOL [Concomitant]
     Indication: HEADACHE
     Route: 048
     Dates: start: 20090722
  11. HYDROCHLOROTHIAZIDE [Concomitant]
     Indication: HYPERTENSION
     Route: 048
     Dates: start: 20090401
  12. PROPRANOLOL [Concomitant]
     Indication: HEADACHE
     Route: 048
     Dates: start: 20100130

REACTIONS (1)
  - MENTAL STATUS CHANGES [None]
